FAERS Safety Report 10543161 (Version 2)
Quarter: 2016Q4

REPORT INFORMATION
  Report Type: Spontaneous
  Country: NL (occurrence: NL)
  Receive Date: 20141027
  Receipt Date: 20161019
  Transmission Date: 20170206
  Serious: Yes (Hospitalization)
  Sender: FDA-Public Use
  Company Number: NL-RANBAXY-2014R1-86802

PATIENT
  Age: 29 Year
  Sex: Male

DRUGS (4)
  1. CEFUROXIME. [Suspect]
     Active Substance: CEFUROXIME
     Indication: APPENDICITIS
     Dosage: UNK
     Route: 042
  2. METRONIDAZOLE. [Suspect]
     Active Substance: METRONIDAZOLE
     Indication: APPENDICEAL ABSCESS
  3. CEFUROXIME. [Suspect]
     Active Substance: CEFUROXIME
     Indication: APPENDICEAL ABSCESS
  4. METRONIDAZOLE. [Suspect]
     Active Substance: METRONIDAZOLE
     Indication: APPENDICITIS
     Dosage: UNK
     Route: 042

REACTIONS (2)
  - Coagulation factor V level decreased [Recovered/Resolved]
  - Anti factor V antibody [Recovered/Resolved]
